FAERS Safety Report 19869227 (Version 1)
Quarter: 2021Q3

REPORT INFORMATION
  Report Type: Spontaneous
  Country: GB (occurrence: GB)
  Receive Date: 20210922
  Receipt Date: 20210922
  Transmission Date: 20211014
  Serious: Yes (Hospitalization)
  Sender: FDA-Public Use
  Company Number: GB-TEVA-2021-GB-1954431

PATIENT
  Age: 43 Year
  Sex: Female

DRUGS (3)
  1. ARIPIPRAZOLE. [Suspect]
     Active Substance: ARIPIPRAZOLE
     Indication: ILL-DEFINED DISORDER
     Dosage: 10 MILLIGRAM DAILY; 10MG OD
     Route: 048
     Dates: start: 20210729, end: 20210816
  2. CETIRIZINE HYDROCHLORIDE. [Concomitant]
     Active Substance: CETIRIZINE HYDROCHLORIDE
     Indication: ILL-DEFINED DISORDER
  3. PROMAZINE HYDROCHLORIDE [Concomitant]
     Active Substance: PROMAZINE HYDROCHLORIDE
     Indication: ILL-DEFINED DISORDER

REACTIONS (2)
  - Salivary hypersecretion [Recovering/Resolving]
  - Delirium [Recovering/Resolving]
